FAERS Safety Report 5470636-8 (Version None)
Quarter: 2007Q3

REPORT INFORMATION
  Report Type: 
  Country: None (occurrence: None)
  Receive Date: 20070820
  Receipt Date: 20070502
  Transmission Date: 20080115
  Serious: No
  Sender: FDA-Public Use
  Company Number: WAES 0705USA00730

PATIENT
  Sex: Male

DRUGS (2)
  1. JANUVIA [Suspect]
     Indication: TYPE 2 DIABETES MELLITUS
     Dosage: 100 MG/DAILY/PO 50 MG/DAILY/PO
     Route: 048
     Dates: start: 20070301, end: 20070101
  2. JANUVIA [Suspect]
     Indication: TYPE 2 DIABETES MELLITUS
     Dosage: 100 MG/DAILY/PO 50 MG/DAILY/PO
     Route: 048
     Dates: start: 20070101

REACTIONS (1)
  - BLOOD CREATININE INCREASED [None]
